FAERS Safety Report 5199602-7 (Version None)
Quarter: 2007Q1

REPORT INFORMATION
  Report Type: 
  Country: None (occurrence: None)
  Receive Date: 20070103
  Receipt Date: 20070103
  Transmission Date: 20070707
  Serious: Yes (Other)
  Sender: FDA-Public Use
  Company Number: None

PATIENT
  Age: 54 Year
  Sex: Male
  Weight: 92.9874 kg

DRUGS (1)
  1. DYNACIRC CR [Suspect]
     Indication: HYPERTENSION
     Dosage: 1 TABLET  DAILY  PO
     Route: 048
     Dates: start: 20060809, end: 20061229

REACTIONS (2)
  - DRUG HYPERSENSITIVITY [None]
  - RASH GENERALISED [None]
